FAERS Safety Report 7098177-5 (Version None)
Quarter: 2010Q4

REPORT INFORMATION
  Report Type: 
  Country: None (occurrence: None)
  Receive Date: 20101112
  Receipt Date: 20101108
  Transmission Date: 20110411
  Serious: Yes (Hospitalization)
  Sender: FDA-Public Use
  Company Number: JP-BRISTOL-MYERS SQUIBB COMPANY-15121213

PATIENT
  Age: 63 Year
  Sex: Male
  Weight: 50 kg

DRUGS (3)
  1. CETUXIMAB [Suspect]
     Indication: GASTROOESOPHAGEAL CANCER
     Dosage: CETUXIMAB 5MG/ML,MOST RECENT INF-21MAY2010 NO OF INF: 5
     Route: 042
     Dates: start: 20100420
  2. BRIPLATIN INJ [Suspect]
     Indication: GASTROOESOPHAGEAL CANCER
     Dosage: ON DAY 1 CYCLE,MOST RECENT INF-11MAY2010 REDUCED TO 60MG/M2.
     Route: 042
     Dates: start: 20100420
  3. XELODA [Suspect]
     Indication: GASTROOESOPHAGEAL CANCER
     Dosage: DAY 1-15,MOST RECENT INF-20MAY2010,THERAPY DATESFROM11MAY10-20MAY10
     Route: 048
     Dates: start: 20100420, end: 20100521

REACTIONS (1)
  - DECREASED APPETITE [None]
